FAERS Safety Report 6173456-4 (Version None)
Quarter: 2009Q2

REPORT INFORMATION
  Report Type: 
  Country: None (occurrence: None)
  Receive Date: 20090429
  Receipt Date: 20090429
  Transmission Date: 20091009
  Serious: Yes (Hospitalization)
  Sender: FDA-Public Use
  Company Number: None

PATIENT
  Sex: Female
  Weight: 75.2 kg

DRUGS (3)
  1. CARBOPLATIN [Suspect]
     Dosage: 684 MG
     Dates: end: 20090414
  2. TAXOL [Suspect]
     Dosage: 326 MG
     Dates: end: 20090414
  3. COUMADIN [Concomitant]

REACTIONS (3)
  - CELLULITIS [None]
  - INTERNATIONAL NORMALISED RATIO INCREASED [None]
  - VAGINAL HAEMORRHAGE [None]
